FAERS Safety Report 6729625-5 (Version None)
Quarter: 2010Q2

REPORT INFORMATION
  Report Type: 
  Country: None (occurrence: None)
  Receive Date: 20100518
  Receipt Date: 20100510
  Transmission Date: 20101027
  Serious: Yes (Hospitalization, Other)
  Sender: FDA-Public Use
  Company Number: PHHO2010US07253

PATIENT
  Sex: Male

DRUGS (9)
  1. LOTREL [Suspect]
     Indication: HYPERTENSION
  2. ASPIRIN [Concomitant]
  3. HYDROCODONE BITARTRATE + IBUPROFEN [Concomitant]
  4. LUPRON [Concomitant]
  5. LEVOTHYROXINE SODIUM [Concomitant]
  6. ONDANSETRON [Concomitant]
  7. ZOLPIDEM [Concomitant]
  8. WARFARIN SODIUM [Concomitant]
  9. TRANSFUSIONS [Concomitant]

REACTIONS (13)
  - DIZZINESS [None]
  - DYSPNOEA EXERTIONAL [None]
  - FATIGUE [None]
  - HAEMOGLOBIN DECREASED [None]
  - HYPERHIDROSIS [None]
  - HYPOTENSION [None]
  - HYPOVOLAEMIA [None]
  - LUNG NEOPLASM [None]
  - LYMPHADENOPATHY MEDIASTINAL [None]
  - METASTASES TO BONE [None]
  - PRESYNCOPE [None]
  - PROSTATE CANCER [None]
  - TUNNEL VISION [None]
